FAERS Safety Report 10594383 (Version 1)
Quarter: 2014Q4

REPORT INFORMATION
  Report Type: Spontaneous
  Country: US (occurrence: US)
  Receive Date: 20141119
  Receipt Date: 20141119
  Transmission Date: 20150529
  Serious: Yes (Other)
  Sender: FDA-Public Use
  Company Number: US-SPECTRUM PHARMACEUTICALS, INC.-14-B-US-00326

PATIENT

DRUGS (4)
  1. CYCLOPHOSPHAMIDE. [Suspect]
     Active Substance: CYCLOPHOSPHAMIDE
     Indication: NEOPLASM OF THYMUS
     Dosage: 500 MG/M2, OVER 60 MIN IV ON DAY 3
     Route: 042
  2. CISPLATIN. [Suspect]
     Active Substance: CISPLATIN
     Indication: NEOPLASM OF THYMUS
     Dosage: 50 MG/M2, OVER 60 MIN IV ON DAY 2
     Route: 042
  3. DOXORUBICIN [Suspect]
     Active Substance: DOXORUBICIN
     Indication: NEOPLASM OF THYMUS
     Dosage: 25 MG/M2, ON DAYS 2 AND 3, IV PUSH OVER 3-5 MIN
     Route: 042
  4. BELINOSTAT [Suspect]
     Active Substance: BELINOSTAT
     Indication: NEOPLASM OF THYMUS
     Dosage: UNK
     Route: 042

REACTIONS (1)
  - Meningoencephalitis viral [Unknown]
